FAERS Safety Report 6585447-X (Version None)
Quarter: 2010Q1

REPORT INFORMATION
  Report Type: 
  Country: None (occurrence: None)
  Receive Date: 20100217
  Receipt Date: 20100209
  Transmission Date: 20100710
  Serious: Yes (Hospitalization)
  Sender: FDA-Public Use
  Company Number: B0633960A

PATIENT
  Sex: Male

DRUGS (4)
  1. AUGMENTIN '125' [Suspect]
     Dosage: 3ML TWICE PER DAY
     Route: 048
     Dates: start: 20090213, end: 20090219
  2. SINGULAIR [Concomitant]
     Route: 048
     Dates: start: 20090212, end: 20090219
  3. VENTOLIN [Concomitant]
     Dosage: .7ML FOUR TIMES PER DAY
     Route: 055
     Dates: start: 20090212, end: 20090219
  4. LORATADINE [Concomitant]
     Route: 048
     Dates: start: 20090212, end: 20090219

REACTIONS (3)
  - PENILE OEDEMA [None]
  - SCROTAL ERYTHEMA [None]
  - SCROTAL OEDEMA [None]
